FAERS Safety Report 23935855 (Version 1)
Quarter: 2024Q2

REPORT INFORMATION
  Report Type: Spontaneous
  Country: US (occurrence: US)
  Receive Date: 20240604
  Receipt Date: 20240604
  Transmission Date: 20240716
  Serious: Yes (Hospitalization, Other)
  Sender: FDA-Public Use
  Company Number: US-MLMSERVICE-20240513-PI059793-00329-1

PATIENT
  Age: 9 Month
  Sex: Male

DRUGS (4)
  1. VANCOMYCIN [Suspect]
     Active Substance: VANCOMYCIN
     Indication: Fatigue
     Dosage: TROUGH BASED AT RENAL DOSING
     Route: 042
  2. VANCOMYCIN [Suspect]
     Active Substance: VANCOMYCIN
     Indication: Mediastinitis
     Dosage: 1000MG OF VANCOMYCIN IN 1000ML OF NORMAL SALINE
     Route: 042
  3. CEFEPIME [Concomitant]
     Active Substance: CEFEPIME HYDROCHLORIDE
     Indication: Mediastinitis
     Dosage: UNK
     Route: 042
  4. SODIUM CHLORIDE [Concomitant]
     Active Substance: SODIUM CHLORIDE
     Indication: Fatigue
     Dosage: WITH 1000MG OF VANCOMYCIN IN 1000ML OF NORMAL SALINE
     Route: 065

REACTIONS (2)
  - Toxicity to various agents [Recovering/Resolving]
  - Blood creatinine increased [Recovering/Resolving]
